FAERS Safety Report 15925272 (Version 2)
Quarter: 2019Q3

REPORT INFORMATION
  Report Type: Spontaneous
  Country: US (occurrence: US)
  Receive Date: 20190206
  Receipt Date: 20190701
  Transmission Date: 20191004
  Serious: No
  Sender: FDA-Public Use
  Company Number: US-PFIZER INC-2019043634

PATIENT
  Age: 87 Year
  Sex: Female
  Weight: 64.86 kg

DRUGS (1)
  1. TIKOSYN [Suspect]
     Active Substance: DOFETILIDE
     Indication: ATRIAL FIBRILLATION
     Dosage: 250 UG, 2X/DAY
     Route: 048

REACTIONS (3)
  - Incorrect dose administered [Unknown]
  - Product dose omission [Unknown]
  - Product dispensing error [Unknown]

NARRATIVE: CASE EVENT DATE: 201808
